FAERS Safety Report 20910344 (Version 1)
Quarter: 2022Q2

REPORT INFORMATION
  Report Type: Spontaneous
  Country: CZ (occurrence: CZ)
  Receive Date: 20220603
  Receipt Date: 20220603
  Transmission Date: 20220721
  Serious: Yes (Other)
  Sender: FDA-Public Use
  Company Number: None

PATIENT
  Age: 49 Year
  Sex: Male

DRUGS (3)
  1. MOLNUPIRAVIR [Suspect]
     Active Substance: MOLNUPIRAVIR
     Indication: COVID-19
     Dosage: UNK
     Route: 048
     Dates: start: 20220412, end: 20220417
  2. SEPTOLETE [BENZALKONIUM CHLORIDE] [Concomitant]
     Dosage: UNK
  3. STOPTUSSIN [BUTAMIRATE CITRATE;GUAIFENESIN] [Concomitant]
     Dosage: UNK

REACTIONS (2)
  - Influenza like illness [Recovered/Resolved]
  - Diverticulitis [Recovered/Resolved]

NARRATIVE: CASE EVENT DATE: 20220418
